FAERS Safety Report 17476153 (Version 1)
Quarter: 2020Q1

REPORT INFORMATION
  Report Type: Report from Study
  Country: GB (occurrence: GB)
  Receive Date: 20200228
  Receipt Date: 20200228
  Transmission Date: 20200409
  Serious: Yes (Hospitalization, Other)
  Sender: FDA-Public Use
  Company Number: GB-JNJFOC-20190818369

PATIENT
  Sex: Female

DRUGS (1)
  1. STELARA [Suspect]
     Active Substance: USTEKINUMAB
     Indication: CROHN^S DISEASE
     Route: 058

REACTIONS (6)
  - Vision blurred [Unknown]
  - Chest discomfort [Unknown]
  - Crohn^s disease [Unknown]
  - Loss of consciousness [Unknown]
  - Headache [Unknown]
  - Respiratory disorder [Not Recovered/Not Resolved]
